FAERS Safety Report 7484096-9 (Version None)
Quarter: 2011Q2

REPORT INFORMATION
  Report Type: 
  Country: None (occurrence: None)
  Receive Date: 20110517
  Receipt Date: 20080828
  Transmission Date: 20111010
  Serious: Yes (Other)
  Sender: FDA-Public Use
  Company Number: US-BAYER-200838533NA

PATIENT
  Age: 63 Year
  Sex: Male
  Weight: 91 kg

DRUGS (11)
  1. TRAZODONE HCL [Concomitant]
     Dosage: 100MG AT BEDTIME
     Route: 048
  2. TRICOR [Concomitant]
     Dosage: 160MG DAILY
     Route: 048
  3. ALBUMIN NOS [Concomitant]
     Dosage: 50CC
     Route: 042
     Dates: start: 20030926
  4. ATENOLOL [Concomitant]
     Dosage: 25MG DAILY
     Route: 048
  5. PAXIL [Concomitant]
     Dosage: TWICE A DAY
     Route: 048
  6. INSULIN, REGULAR [INSULIN] [Concomitant]
     Dosage: 5 UNITS
     Route: 042
     Dates: start: 20030926
  7. TRASYLOL [Suspect]
     Indication: CORONARY ARTERY BYPASS
     Dosage: 200CC OVER 90 MINUTES, CONTINUED POST OPERATIVELY AT 50CC/ HOUR
     Route: 042
     Dates: start: 20030926, end: 20030927
  8. HYDROCODONE [HYDROCODONE] [Concomitant]
     Dosage: AS NEEDED
     Route: 048
  9. NITROGLYCERIN [Concomitant]
     Dosage: 0.4 MG AS NEEDED FOR CHEST PAIN
     Route: 060
  10. ZOCOR [Concomitant]
     Dosage: 80 MG DAILY
     Route: 048
  11. HEPARIN [Concomitant]
     Dosage: 1100 UNITS
     Route: 042
     Dates: start: 20030926

REACTIONS (5)
  - RENAL FAILURE [None]
  - INJURY [None]
  - ANHEDONIA [None]
  - PAIN [None]
  - UNEVALUABLE EVENT [None]
